FAERS Safety Report 9183748 (Version 1)
Quarter: 2013Q1

REPORT INFORMATION
  Report Type: Spontaneous
  Country: US (occurrence: US)
  Receive Date: 20130322
  Receipt Date: 20130322
  Transmission Date: 20140127
  Serious: No
  Sender: FDA-Public Use
  Company Number: US-BRISTOL-MYERS SQUIBB COMPANY-16599359

PATIENT
  Age: 72 Year
  Sex: Male
  Weight: 90.25 kg

DRUGS (1)
  1. ERBITUX [Suspect]
     Indication: LYMPHOMA
     Dosage: SECOND INFUSION ON 14-MAY-2012.

REACTIONS (2)
  - Rash pruritic [Unknown]
  - Weight increased [Unknown]
